FAERS Safety Report 5711726-1 (Version None)
Quarter: 2008Q2

REPORT INFORMATION
  Report Type: 
  Country: None (occurrence: None)
  Receive Date: 20080421
  Receipt Date: 20080410
  Transmission Date: 20081010
  Serious: Yes (Other)
  Sender: FDA-Public Use
  Company Number: PHHY2008GT05249

PATIENT
  Age: 60 Year

DRUGS (4)
  1. CARDIMEN [Concomitant]
     Dosage: 20 MG, QD
     Route: 048
  2. DIOVAN HCT [Suspect]
     Indication: HYPERTENSION
     Dosage: 320/25 MG DAILY
     Route: 048
     Dates: start: 20080225
  3. VASTAREL [Concomitant]
     Dosage: 1 TABLET EVERY 12 HOURS
     Route: 048
  4. CRESTOR [Concomitant]
     Dosage: 10 MG EVERY 24 HOURS
     Route: 048

REACTIONS (6)
  - ANGINA PECTORIS [None]
  - BLOOD CREATINE PHOSPHOKINASE MB INCREASED [None]
  - BUNDLE BRANCH BLOCK LEFT [None]
  - CHEST PAIN [None]
  - ELECTROCARDIOGRAM REPOLARISATION ABNORMALITY [None]
  - TROPONIN T INCREASED [None]
